FAERS Safety Report 20885280 (Version 1)
Quarter: 2022Q2

REPORT INFORMATION
  Report Type: Spontaneous
  Country: IT (occurrence: IT)
  Receive Date: 20220527
  Receipt Date: 20220527
  Transmission Date: 20220720
  Serious: Yes (Hospitalization)
  Sender: FDA-Public Use
  Company Number: None

PATIENT
  Age: 16 Year
  Sex: Female

DRUGS (3)
  1. HALDOL [Suspect]
     Active Substance: HALOPERIDOL
     Indication: Intentional self-injury
     Dosage: ; IN TOTAL
     Route: 048
     Dates: start: 20220514, end: 20220514
  2. PAROXETINE [Concomitant]
     Active Substance: PAROXETINE
  3. XANAX [Concomitant]
     Active Substance: ALPRAZOLAM

REACTIONS (7)
  - Dystonia [Recovering/Resolving]
  - Blepharospasm [Recovering/Resolving]
  - Substance abuse [Recovering/Resolving]
  - Tremor [Recovering/Resolving]
  - Mydriasis [Recovering/Resolving]
  - Parkinsonism [Recovering/Resolving]
  - Hypokinesia [Recovering/Resolving]

NARRATIVE: CASE EVENT DATE: 20220514
